FAERS Safety Report 8034498-7 (Version None)
Quarter: 2012Q1

REPORT INFORMATION
  Report Type: 
  Country: None (occurrence: None)
  Receive Date: 20120110
  Receipt Date: 20120110
  Transmission Date: 20120608
  Serious: Yes (Other)
  Sender: FDA-Public Use
  Company Number: ZA-PFIZER INC-2011294084

PATIENT
  Age: 30 Year
  Sex: Male

DRUGS (1)
  1. VARENICLINE TARTRATE [Suspect]
     Dosage: UNK
     Route: 048
     Dates: start: 20111107, end: 20111121

REACTIONS (5)
  - AGGRESSION [None]
  - PERSONALITY CHANGE [None]
  - FATIGUE [None]
  - DEPRESSION [None]
  - AMNESIA [None]
